FAERS Safety Report 19688687 (Version 2)
Quarter: 2021Q3

REPORT INFORMATION
  Report Type: Spontaneous
  Country: PL (occurrence: PL)
  Receive Date: 20210812
  Receipt Date: 20210816
  Transmission Date: 20211014
  Serious: Yes (Death, Life-Threatening, Hospitalization, Other)
  Sender: FDA-Public Use
  Company Number: PL-AMGEN-POLSP2021119511

PATIENT
  Age: 16 Month
  Sex: Female

DRUGS (7)
  1. FLUDARABINE [Concomitant]
     Active Substance: FLUDARABINE PHOSPHATE
     Dosage: UNK (5 X 30 MG/M2)
  2. FILGRASTIM [Suspect]
     Active Substance: FILGRASTIM
     Indication: INFANTILE GENETIC AGRANULOCYTOSIS
     Dosage: UNK
     Route: 065
  3. TREOSULFAN [Concomitant]
     Active Substance: TREOSULFAN
     Dosage: UNK, (3 X 10 G/M2)
  4. PREDNISONE. [Concomitant]
     Active Substance: PREDNISONE
     Indication: IMMUNE THROMBOCYTOPENIA
     Dosage: UNK FOR 1 MONTH
     Route: 065
  5. ELTROMBOPAG [Concomitant]
     Active Substance: ELTROMBOPAG
     Dosage: 25 MILLIGRAM, QD (INTRODUCED FOR 4 WEEKS)
  6. GRAFALON [Concomitant]
     Active Substance: LAPINE T-LYMPHOCYTE IMMUNE GLOBULIN
     Dosage: 45 MILLIGRAM/KILOGRAM
  7. DEXAMETHASONE. [Concomitant]
     Active Substance: DEXAMETHASONE
     Dosage: UNK

REACTIONS (10)
  - Alpha haemolytic streptococcal infection [Unknown]
  - Hypertension [Unknown]
  - Condition aggravated [Unknown]
  - Brain oedema [Unknown]
  - Pyrexia [Unknown]
  - Intracranial pressure increased [Unknown]
  - Death [Fatal]
  - Coma [Unknown]
  - Brain herniation [Unknown]
  - Hypernatraemia [Unknown]
